FAERS Safety Report 17242539 (Version 1)
Quarter: 2020Q1

REPORT INFORMATION
  Report Type: Spontaneous
  Country: US (occurrence: US)
  Receive Date: 20200106
  Receipt Date: 20200106
  Transmission Date: 20200409
  Serious: Yes (Other)
  Sender: FDA-Public Use
  Company Number: None

PATIENT
  Age: 63 Year
  Sex: Female

DRUGS (1)
  1. NUCALA [Suspect]
     Active Substance: MEPOLIZUMAB
     Dosage: ?          OTHER FREQUENCY:1 SYRNG EVRY 4 WKS;?
     Route: 058
     Dates: start: 20190912, end: 20200106

REACTIONS (4)
  - Influenza like illness [None]
  - Immobile [None]
  - Musculoskeletal stiffness [None]
  - Therapy cessation [None]

NARRATIVE: CASE EVENT DATE: 20200106
